FAERS Safety Report 25749046 (Version 2)
Quarter: 2025Q3

REPORT INFORMATION
  Report Type: Spontaneous
  Country: EU (occurrence: EU)
  Receive Date: 20250902
  Receipt Date: 20250913
  Transmission Date: 20251020
  Serious: Yes (Hospitalization, Other)
  Sender: AUROBINDO
  Company Number: EU-MYLANLABS-2025M1069491

PATIENT
  Age: 32 Year
  Sex: Male

DRUGS (11)
  1. TACROLIMUS [Suspect]
     Active Substance: TACROLIMUS
     Indication: Immunosuppressant drug therapy
     Dosage: 5.5 MILLIGRAM, 3 TIMES A DAY
     Route: 065
  2. PREDNISOLONE [Suspect]
     Active Substance: PREDNISOLONE
     Indication: Immunosuppressant drug therapy
     Dosage: 5 MILLIGRAM
     Route: 065
  3. CAPECITABINE [Suspect]
     Active Substance: CAPECITABINE
     Indication: Buschke-Lowenstein^s tumour
     Dosage: 650 MILLIGRAM, TWO TIMES A DAY
     Route: 048
  4. EVEROLIMUS [Suspect]
     Active Substance: EVEROLIMUS
     Indication: Immunosuppressant drug therapy
     Dosage: 1 MILLIGRAM, TWO TIMES A DAY
     Route: 065
  5. IMIQUIMOD [Suspect]
     Active Substance: IMIQUIMOD
     Indication: Buschke-Lowenstein^s tumour
     Route: 061
  6. MITOMYCIN [Suspect]
     Active Substance: MITOMYCIN
     Indication: Buschke-Lowenstein^s tumour
     Route: 042
  7. ACETAMINOPHEN [Concomitant]
     Active Substance: ACETAMINOPHEN
     Indication: Proctalgia
     Route: 065
  8. BUPRENORPHINE [Concomitant]
     Active Substance: BUPRENORPHINE
     Indication: Proctalgia
     Route: 065
  9. GABAPENTIN [Concomitant]
     Active Substance: GABAPENTIN
     Indication: Proctalgia
     Route: 065
  10. ETORICOXIB [Concomitant]
     Active Substance: ETORICOXIB
     Indication: Proctalgia
     Route: 065
  11. FENTANYL [Concomitant]
     Active Substance: FENTANYL
     Indication: Proctalgia
     Route: 065

REACTIONS (8)
  - Buschke-Lowenstein^s tumour [Recovering/Resolving]
  - Insomnia [Recovering/Resolving]
  - Activities of daily living decreased [Recovering/Resolving]
  - Chronic kidney disease [Recovering/Resolving]
  - Gait disturbance [Recovering/Resolving]
  - Nephropathy toxic [Recovering/Resolving]
  - Drug ineffective for unapproved indication [Unknown]
  - Off label use [Unknown]
